FAERS Safety Report 10084291 (Version 1)
Quarter: 2014Q2

REPORT INFORMATION
  Report Type: Spontaneous
  Country: US (occurrence: US)
  Receive Date: 20140417
  Receipt Date: 20140417
  Transmission Date: 20141212
  Serious: Yes (Hospitalization)
  Sender: FDA-Public Use
  Company Number: US-LUNDBECK-DKLU1099178

PATIENT
  Age: 2 Year
  Sex: Female

DRUGS (1)
  1. SABRIL     (TABLET) [Suspect]
     Indication: INFANTILE SPASMS
     Route: 048

REACTIONS (1)
  - Pneumonia [Unknown]
